FAERS Safety Report 25200134 (Version 2)
Quarter: 2025Q2

REPORT INFORMATION
  Report Type: Spontaneous
  Country: US (occurrence: US)
  Receive Date: 20250415
  Receipt Date: 20250510
  Transmission Date: 20250716
  Serious: No
  Sender: SANOFI AVENTIS
  Company Number: US-SANOFI-02484509

PATIENT
  Age: 69 Year
  Sex: Female

DRUGS (2)
  1. LANTUS [Suspect]
     Active Substance: INSULIN GLARGINE
     Indication: Diabetes mellitus
     Dosage: 5 IU, QD
     Route: 065
     Dates: start: 20250116
  2. LANTUS [Suspect]
     Active Substance: INSULIN GLARGINE
     Dosage: 7 IU, QD
     Dates: start: 2025

REACTIONS (2)
  - Vision blurred [Unknown]
  - Glycosylated haemoglobin increased [Recovering/Resolving]
